FAERS Safety Report 23067566 (Version 1)
Quarter: 2023Q4

REPORT INFORMATION
  Report Type: Spontaneous
  Country: US (occurrence: None)
  Receive Date: 20231016
  Receipt Date: 20231016
  Transmission Date: 20240109
  Serious: No
  Sender: FDA-Public Use
  Company Number: 2023A227636

PATIENT
  Age: 70 Year
  Sex: Female

DRUGS (3)
  1. ROSUVASTATIN [Suspect]
     Active Substance: ROSUVASTATIN
     Indication: Blood cholesterol increased
     Route: 048
  2. ENZALUTAMIDE [Suspect]
     Active Substance: ENZALUTAMIDE
     Indication: Prostate cancer
     Route: 048
     Dates: start: 20221007
  3. LUPRON [Concomitant]
     Active Substance: LEUPROLIDE ACETATE

REACTIONS (2)
  - Blood cholesterol increased [Not Recovered/Not Resolved]
  - Somnolence [Not Recovered/Not Resolved]
